FAERS Safety Report 8518842-X (Version None)
Quarter: 2012Q3

REPORT INFORMATION
  Report Type: 
  Country: None (occurrence: None)
  Receive Date: 20120709
  Receipt Date: 20120703
  Transmission Date: 20120928
  Serious: Yes (Hospitalization)
  Sender: FDA-Public Use
  Company Number: 2012032208

PATIENT
  Age: 14 Year
  Sex: Female

DRUGS (3)
  1. HIZENTRA [Suspect]
     Indication: BRUTON'S AGAMMAGLOBULINAEMIA
     Dosage: SEE IMAGE
     Route: 058
     Dates: start: 20110602, end: 20120326
  2. GAMUNEX [Suspect]
     Dosage: (20 GM; 1 DOSE ONLY)
     Dates: start: 20120319, end: 20120319
  3. KEPPRA [Suspect]
     Indication: CONVULSION
     Dates: end: 20120420

REACTIONS (4)
  - ANTIBODY TEST POSITIVE [None]
  - AGGRESSION [None]
  - DISORIENTATION [None]
  - ENCEPHALITIS [None]
